FAERS Safety Report 10509823 (Version 2)
Quarter: 2014Q4

REPORT INFORMATION
  Report Type: Spontaneous
  Country: US (occurrence: US)
  Receive Date: 20141010
  Receipt Date: 20141127
  Transmission Date: 20150528
  Serious: No
  Sender: FDA-Public Use
  Company Number: US-BIOGENIDEC-2014BI103706

PATIENT
  Sex: Female

DRUGS (2)
  1. TECFIDERA [Suspect]
     Active Substance: DIMETHYL FUMARATE
     Indication: MULTIPLE SCLEROSIS
     Route: 048
     Dates: start: 20140404, end: 201406
  2. TECFIDERA [Suspect]
     Active Substance: DIMETHYL FUMARATE
     Indication: MULTIPLE SCLEROSIS
     Dates: start: 20140404

REACTIONS (6)
  - Alopecia [Recovered/Resolved]
  - Chest discomfort [Unknown]
  - Gait disturbance [Unknown]
  - Drug intolerance [Recovered/Resolved with Sequelae]
  - Dyspnoea [Unknown]
  - Balance disorder [Unknown]

NARRATIVE: CASE EVENT DATE: 2014
